FAERS Safety Report 9251856 (Version 1)
Quarter: 2013Q1

REPORT INFORMATION
  Report Type: Spontaneous
  Country: US (occurrence: None)
  Receive Date: 20130305
  Receipt Date: 20130305
  Transmission Date: 20140127
  Serious: Yes (Other)
  Sender: FDA-Public Use
  Company Number: 163-21880-12071831

PATIENT
  Age: 79 Year
  Sex: Male

DRUGS (2)
  1. REVLIMID [Suspect]
     Indication: PLASMA CELL MYELOMA
     Dosage: 07/06/2011 - , CAPSULE, 10 MG, 21 IN 21 D, PO
  2. MEGESTROL ACETATE (MEGESTROL ACETATE) [Concomitant]

REACTIONS (1)
  - Drug ineffective [None]
